FAERS Safety Report 9090240 (Version 1)
Quarter: 2013Q1

REPORT INFORMATION
  Report Type: Spontaneous
  Country: DE (occurrence: DE)
  Receive Date: 20130201
  Receipt Date: 20130201
  Transmission Date: 20140127
  Serious: Yes (Other)
  Sender: FDA-Public Use
  Company Number: DE-EISAI INC-E2007-01026-SPO-DE

PATIENT
  Age: 51 Year
  Sex: Female
  Weight: 80 kg

DRUGS (9)
  1. FYCOMPA [Suspect]
     Indication: EPILEPSY
     Route: 048
     Dates: start: 20121204, end: 201301
  2. FYCOMPA [Suspect]
     Route: 048
     Dates: start: 201301, end: 201301
  3. FYCOMPA [Suspect]
     Route: 048
     Dates: start: 201301
  4. L-THYROSIN [Concomitant]
     Indication: AUTOIMMUNE THYROIDITIS
     Dosage: 125 MCG DAILY
     Route: 048
  5. LEVETIRACETAME [Concomitant]
     Indication: EPILEPSY
     Dosage: 3000 MG DAILY
     Route: 048
     Dates: start: 2012
  6. LAMOTRIGINE [Concomitant]
     Indication: EPILEPSY
     Dosage: 200 MG DAILY
     Route: 048
  7. RAMIPRIL [Concomitant]
     Indication: HYPERTONIA
     Dosage: 5 MG DAILY
     Route: 048
  8. HYDROCHLOROTHIAZID [Concomitant]
     Indication: HYPERTONIA
     Dosage: 12.5 MG DAILY
     Route: 048
  9. ASS [Concomitant]
     Indication: CEREBRAL MICROANGIOPATHY
     Dosage: 100 MG DAILY
     Route: 048

REACTIONS (4)
  - Hallucination, visual [Recovered/Resolved]
  - Somnolence [Recovered/Resolved]
  - Dizziness [Recovered/Resolved]
  - Ataxia [Recovered/Resolved]
